FAERS Safety Report 9485157 (Version 2)
Quarter: 2013Q4

REPORT INFORMATION
  Report Type: Spontaneous
  Country: IT (occurrence: IT)
  Receive Date: 20130828
  Receipt Date: 20131019
  Transmission Date: 20140711
  Serious: Yes (Other)
  Sender: FDA-Public Use
  Company Number: IT-ROCHE-1265957

PATIENT
  Age: 77 Year
  Sex: Female

DRUGS (8)
  1. AVASTIN [Suspect]
     Indication: ADENOCARCINOMA OF COLON
     Route: 042
     Dates: start: 20120903, end: 20130107
  2. IRINOTECAN HYDROCHLORIDE TRIHYDRATE [Suspect]
     Indication: ADENOCARCINOMA OF COLON
     Route: 042
     Dates: start: 20120909, end: 20130107
  3. FLUOROURACILE TEVA [Suspect]
     Indication: ADENOCARCINOMA OF COLON
     Route: 040
     Dates: start: 20120903, end: 20130107
  4. FLUOROURACILE TEVA [Suspect]
     Dosage: FORM STRENGTH: 5G/100ML
     Route: 042
     Dates: start: 20120903, end: 20130107
  5. ONDANSETRON HIKMA [Concomitant]
     Indication: PROPHYLAXIS OF NAUSEA AND VOMITING
     Dosage: FORM STRENGTH: 8MG/4ML
     Route: 042
  6. SOLDESAM [Concomitant]
     Indication: PROPHYLAXIS OF NAUSEA AND VOMITING
     Dosage: FORM STRENGTH: 8MG/2ML
     Route: 042
  7. RANIDIL [Concomitant]
     Dosage: FORM STRENGTH: 5MG/5ML
     Route: 042
  8. LEVOFOLENE [Concomitant]
     Route: 042

REACTIONS (9)
  - Conjunctivitis [Unknown]
  - Nausea [Unknown]
  - Vomiting [Unknown]
  - Diarrhoea [Unknown]
  - Stomatitis [Unknown]
  - Dyspnoea [Unknown]
  - Asthenia [Unknown]
  - Abdominal pain [Unknown]
  - Headache [Unknown]
